FAERS Safety Report 9259245 (Version 1)
Quarter: 2013Q2

REPORT INFORMATION
  Report Type: Spontaneous
  Country: US (occurrence: US)
  Receive Date: 20130426
  Receipt Date: 20130426
  Transmission Date: 20140414
  Serious: Yes (Other)
  Sender: FDA-Public Use
  Company Number: US-PFIZER INC-2013128320

PATIENT
  Age: 74 Year
  Sex: Female
  Weight: 74.83 kg

DRUGS (12)
  1. XELJANZ [Suspect]
     Dosage: 5 MG, 2X/DAY
     Route: 048
  2. DUEXIS [Concomitant]
     Dosage: 800-26.6, UNK
  3. LOVAZA [Concomitant]
     Dosage: 1 G, UNK
  4. AMLODIPINE [Concomitant]
     Dosage: 5 MG, UNK
  5. FOLIC ACID [Concomitant]
     Dosage: UNK
  6. PREDNISONE [Concomitant]
     Dosage: 5 MG, UNK
  7. PLAQUENIL [Concomitant]
     Dosage: 200 MG, UNK
  8. BYSTOLIC [Concomitant]
     Dosage: 10 MG, UNK
  9. SYNTHROID [Concomitant]
     Dosage: 75 UG, UNK
  10. NEURONTIN [Concomitant]
     Dosage: 300 MG, UNK
  11. LIPITOR [Concomitant]
     Dosage: 10 MG, UNK
  12. VICODIN ES [Concomitant]
     Dosage: 7.5-750, UNK

REACTIONS (3)
  - Cystitis [Unknown]
  - Rheumatoid arthritis [Unknown]
  - Renal disorder [Unknown]
